FAERS Safety Report 20704781 (Version 1)
Quarter: 2022Q2

REPORT INFORMATION
  Report Type: Spontaneous
  Country: DE (occurrence: DE)
  Receive Date: 20220413
  Receipt Date: 20220413
  Transmission Date: 20220720
  Serious: Yes (Death, Life-Threatening, Hospitalization, Other)
  Sender: FDA-Public Use
  Company Number: DE-009507513-2204DEU003601

PATIENT
  Age: 60 Year
  Sex: Male

DRUGS (1)
  1. KEYTRUDA [Suspect]
     Active Substance: PEMBROLIZUMAB
     Indication: Non-small cell lung cancer stage IV
     Dosage: STRENGTH: 25 MG/ML, 200 MG, EVERY 3 WEEKS (Q3W)

REACTIONS (4)
  - Death [Fatal]
  - Cholangitis [Unknown]
  - Liver abscess [Unknown]
  - Asthenia [Unknown]
